FAERS Safety Report 10442143 (Version 1)
Quarter: 2014Q3

REPORT INFORMATION
  Report Type: Spontaneous
  Country: US (occurrence: US)
  Receive Date: 20140909
  Receipt Date: 20140909
  Transmission Date: 20150326
  Serious: Yes (Other)
  Sender: FDA-Public Use
  Company Number: US-BRISTOL-MYERS SQUIBB COMPANY-21354592

PATIENT
  Age: 52 Year
  Sex: Female
  Weight: 71.65 kg

DRUGS (11)
  1. LOZOL [Concomitant]
     Active Substance: INDAPAMIDE
  2. BABY ASPIRIN [Concomitant]
     Active Substance: ASPIRIN
  3. ORENCIA [Suspect]
     Active Substance: ABATACEPT
     Indication: RHEUMATOID ARTHRITIS
     Dosage: POWDER FOR SOLUTION
     Route: 058
  4. ZOCOR [Concomitant]
     Active Substance: SIMVASTATIN
  5. PLAQUENIL [Concomitant]
     Active Substance: HYDROXYCHLOROQUINE SULFATE
  6. CITRACAL + D [Concomitant]
     Active Substance: CALCIUM CITRATE\VITAMIN D
  7. COQ10 [Concomitant]
     Active Substance: UBIDECARENONE
  8. FISH OIL [Concomitant]
     Active Substance: FISH OIL
  9. METHOTREXATE [Concomitant]
     Active Substance: METHOTREXATE
  10. LISINOPRIL. [Concomitant]
     Active Substance: LISINOPRIL
  11. VITAMIN B12 [Concomitant]
     Active Substance: CYANOCOBALAMIN

REACTIONS (3)
  - Decreased appetite [Unknown]
  - Weight decreased [Unknown]
  - Arthropathy [Unknown]
